FAERS Safety Report 15555681 (Version 1)
Quarter: 2018Q4

REPORT INFORMATION
  Report Type: Spontaneous
  Country: US (occurrence: US)
  Receive Date: 20181022
  Receipt Date: 20181022
  Transmission Date: 20190205
  Serious: Yes (Hospitalization)
  Sender: FDA-Public Use
  Company Number: None

PATIENT
  Sex: Male

DRUGS (1)
  1. XTANDI [Suspect]
     Active Substance: ENZALUTAMIDE
     Dosage: ?          OTHER DOSE:TAKE4CAP^S (160MG);OTHER FREQUENCY:ONCE DAILY;?
     Route: 048
     Dates: start: 20180604, end: 20180901

REACTIONS (2)
  - Fall [None]
  - Coma [None]
